FAERS Safety Report 15986782 (Version 2)
Quarter: 2019Q1

REPORT INFORMATION
  Report Type: Spontaneous
  Country: CH (occurrence: CH)
  Receive Date: 20190220
  Receipt Date: 20190225
  Transmission Date: 20190418
  Serious: Yes (Death, Hospitalization, Other)
  Sender: FDA-Public Use
  Company Number: CH-PFIZER INC-2019065613

PATIENT
  Age: 47 Year
  Sex: Female

DRUGS (21)
  1. ZOLPIDEM [Concomitant]
     Active Substance: ZOLPIDEM\ZOLPIDEM TARTRATE
     Indication: SCHIZOAFFECTIVE DISORDER
     Dosage: 10 MG, ONCE DAILY IN RESERVE AS NECESSARY
     Route: 048
     Dates: start: 20181126
  2. ELTROXIN [Concomitant]
     Active Substance: LEVOTHYROXINE
     Indication: HYPOTHYROIDISM
     Dosage: 75 UG, 1X/DAY
     Route: 048
     Dates: start: 201804
  3. TEMESTA [LORAZEPAM] [Suspect]
     Active Substance: LORAZEPAM
     Indication: SCHIZOAFFECTIVE DISORDER
     Dosage: 2.5 MG, MAXIMUM TWICE DAILY IN RESERVE AS NECESSARY
     Route: 048
     Dates: start: 201805
  4. INDERAL [Suspect]
     Active Substance: PROPRANOLOL HYDROCHLORIDE
     Indication: TACHYCARDIA
     Dosage: 40 MG, 1X/DAY
     Route: 048
  5. METFIN [Suspect]
     Active Substance: METFORMIN HYDROCHLORIDE
     Indication: TYPE 2 DIABETES MELLITUS
     Dosage: 500 MG, 1X/DAY
     Route: 048
     Dates: start: 20181119
  6. CLARITHROMYCIN. [Interacting]
     Active Substance: CLARITHROMYCIN
     Indication: INFECTION
     Dosage: 500 MG, 2X/DAY
     Route: 048
     Dates: start: 20190120, end: 20190121
  7. SPASMO-URGENIN NEO [Concomitant]
     Active Substance: TROSPIUM
     Indication: URINARY INCONTINENCE
     Dosage: 40 MG, 1X/DAY
     Route: 048
     Dates: start: 20190109
  8. CERAZETTE [DESOGESTREL] [Concomitant]
     Active Substance: DESOGESTREL
     Indication: POLYCYSTIC OVARIES
     Dosage: 0.075 MG, 1X/DAY
     Route: 048
     Dates: start: 20181130
  9. PIPERACILLIN/TAZOBACTAM [Interacting]
     Active Substance: PIPERACILLIN SODIUM\TAZOBACTAM SODIUM
     Indication: INFECTION
     Dosage: 4500 MG, 3X/DAY
     Route: 041
     Dates: start: 20190120
  10. CLOPIN ECO [Suspect]
     Active Substance: CLOZAPINE
     Indication: SCHIZOAFFECTIVE DISORDER
     Dosage: 25 MG, 1X/DAY
     Route: 048
     Dates: start: 20181204
  11. ATORVASTATIN [Concomitant]
     Active Substance: ATORVASTATIN
     Indication: HYPERCHOLESTEROLAEMIA
     Dosage: 20 MG, 1X/DAY
     Route: 048
     Dates: start: 20181119
  12. DUSPATALIN [MEBEVERINE HYDROCHLORIDE] [Concomitant]
     Indication: IRRITABLE BOWEL SYNDROME
     Dosage: 400 MG, 1X/DAY
     Route: 048
     Dates: start: 20181119
  13. HALOPERIDOL. [Interacting]
     Active Substance: HALOPERIDOL
     Indication: AGITATION
     Dosage: 5 MG, 2X/DAY
     Route: 048
     Dates: start: 20190120
  14. DAFALGAN [Suspect]
     Active Substance: ACETAMINOPHEN
     Indication: PAIN
     Dosage: 1G, MAXIMUM THRICE DAILY IN RESERVE AS NECESSARY
     Route: 048
     Dates: start: 20181121
  15. BETMIGA [Suspect]
     Active Substance: MIRABEGRON
     Indication: URINARY INCONTINENCE
     Dosage: 50 MG, 1X/DAY
     Route: 048
     Dates: start: 201804
  16. CALCIUM SANDOZ + WITAMIN D3 [Concomitant]
     Dosage: 1 DF = 1TABLET (500MG/440 IU), 1X/DAY
     Route: 048
     Dates: start: 20181123
  17. SYMBICORT [Concomitant]
     Active Substance: BUDESONIDE\FORMOTEROL FUMARATE DIHYDRATE
     Indication: CHRONIC OBSTRUCTIVE PULMONARY DISEASE
     Dosage: 2 INHALATIONS ONCE DAILY (BUDESONIDE 200 MICROG, FORMOTEROL 6 MICROG)
     Route: 055
     Dates: start: 20181216
  18. CIPRALEX [Interacting]
     Active Substance: ESCITALOPRAM OXALATE
     Indication: SCHIZOAFFECTIVE DISORDER
     Dosage: 10 MG, 1X/DAY
     Route: 048
  19. TRANXILIUM [Concomitant]
     Active Substance: CLORAZEPATE DIPOTASSIUM
     Indication: SCHIZOAFFECTIVE DISORDER
     Dosage: 40 MG, 1X/DAY
     Route: 048
     Dates: start: 20181119
  20. CLOPIN ECO [Suspect]
     Active Substance: CLOZAPINE
     Dosage: 300 MG, 1X/DAY
     Route: 048
     Dates: start: 20181220, end: 20190119
  21. VENTOLIN [Interacting]
     Active Substance: ALBUTEROL SULFATE
     Indication: CHRONIC OBSTRUCTIVE PULMONARY DISEASE
     Dosage: 100 UG, MAXIMUM IN RESERVE FOUR TIMES DAILY AS NECESSARY
     Route: 055
     Dates: start: 20181214

REACTIONS (9)
  - Haemoglobin decreased [Unknown]
  - Cardiac arrest [Fatal]
  - Agranulocytosis [Not Recovered/Not Resolved]
  - Cough [Not Recovered/Not Resolved]
  - Oropharyngeal pain [Not Recovered/Not Resolved]
  - PO2 decreased [Unknown]
  - Drug interaction [Fatal]
  - Dyspnoea [Not Recovered/Not Resolved]
  - Pyrexia [Not Recovered/Not Resolved]

NARRATIVE: CASE EVENT DATE: 20190114
